FAERS Safety Report 12897045 (Version 2)
Quarter: 2017Q1

REPORT INFORMATION
  Report Type: Spontaneous
  Country: US (occurrence: US)
  Receive Date: 20161031
  Receipt Date: 20170104
  Transmission Date: 20170428
  Serious: No
  Sender: FDA-Public Use
  Company Number: US-PFIZER INC-2016504223

PATIENT
  Age: 63 Year
  Sex: Female
  Weight: 105.2 kg

DRUGS (12)
  1. LEFLUNOMIDE. [Concomitant]
     Active Substance: LEFLUNOMIDE
     Indication: ARTHRITIS
     Dosage: 20 MG, 1X/DAY
  2. LEVOTHYROXINE. [Concomitant]
     Active Substance: LEVOTHYROXINE
     Indication: THYROID DISORDER
     Dosage: 175 UG, 1X/DAY
  3. IBUPROFEN. [Concomitant]
     Active Substance: IBUPROFEN
     Dosage: 800 MG, 1X/DAY
     Route: 048
  4. METFORMIN [Concomitant]
     Active Substance: METFORMIN HYDROCHLORIDE
     Indication: DIABETES MELLITUS
     Dosage: 500 MG, 2X/DAY
  5. CRESTOR [Concomitant]
     Active Substance: ROSUVASTATIN CALCIUM
     Indication: BLOOD CHOLESTEROL ABNORMAL
     Dosage: 20 MG, 1X/DAY
  6. XELJANZ [Suspect]
     Active Substance: TOFACITINIB CITRATE
     Indication: RHEUMATOID ARTHRITIS
     Dosage: 5 MG, 2X/DAY (ONE IN MORNING AND ONE AT NIGHT)
     Route: 048
     Dates: start: 2015, end: 201612
  7. AMLODIPINE [Concomitant]
     Active Substance: AMLODIPINE BESYLATE
     Indication: BLOOD PRESSURE MANAGEMENT
     Dosage: 5 MG, 1X/DAY
  8. GLIPIZIDE. [Concomitant]
     Active Substance: GLIPIZIDE
     Indication: DIABETES MELLITUS
     Dosage: 5 MG, 1X/DAY
     Dates: start: 2014
  9. PREDNISONE. [Concomitant]
     Active Substance: PREDNISONE
     Indication: ARTHRITIS
     Dosage: 10 MG, 1X/DAY
     Dates: start: 2006
  10. IBUPROFEN. [Concomitant]
     Active Substance: IBUPROFEN
     Indication: PAIN
     Dosage: 800 MG (ONE TABLET), THREE TIMES AS NEEDED
     Route: 048
  11. LISINOPRIL HCTZ [Concomitant]
     Active Substance: HYDROCHLOROTHIAZIDE\LISINOPRIL
     Indication: BLOOD PRESSURE MANAGEMENT
     Dosage: UNK, 1X/DAY [HYDROCHLOROTHIAZIDE: 12.5 MG]/ [LISINOPRIL: 20 MG]
  12. LISINOPRIL HCTZ [Concomitant]
     Active Substance: HYDROCHLOROTHIAZIDE\LISINOPRIL
     Indication: FLUID RETENTION

REACTIONS (7)
  - Malaise [Unknown]
  - Infection [Recovered/Resolved]
  - Nasal congestion [Recovering/Resolving]
  - Rhinorrhoea [Unknown]
  - Nasopharyngitis [Recovering/Resolving]
  - Oropharyngeal pain [Unknown]
  - Cough [Recovering/Resolving]

NARRATIVE: CASE EVENT DATE: 201612
